FAERS Safety Report 5663894-8 (Version None)
Quarter: 2008Q1

REPORT INFORMATION
  Report Type: 
  Country: None (occurrence: None)
  Receive Date: 20080311
  Receipt Date: 20080215
  Transmission Date: 20080703
  Serious: Yes (Life-Threatening, Other)
  Sender: FDA-Public Use
  Company Number: 2008EU000032

PATIENT
  Age: 8 Year
  Sex: Male

DRUGS (5)
  1. PROGRAF [Suspect]
     Indication: LIVER TRANSPLANT
     Dosage: /D, ORAL
     Route: 048
     Dates: start: 20001202, end: 20040301
  2. MYCOPHENOLATE MOFETIL [Concomitant]
  3. IMMUNOGLOBULINS (IMMUNOGLOBULINS) [Concomitant]
  4. CORTICOSTEROID NOS (CORTICOSTEROID NOS) [Concomitant]
  5. RITUXIMAB (RITUXIMAB) [Concomitant]

REACTIONS (5)
  - EVANS SYNDROME [None]
  - LYMPHOPROLIFERATIVE DISORDER [None]
  - NO THERAPEUTIC RESPONSE [None]
  - PANCYTOPENIA [None]
  - PARVOVIRUS INFECTION [None]
